FAERS Safety Report 5376010-7 (Version None)
Quarter: 2007Q3

REPORT INFORMATION
  Report Type: 
  Country: None (occurrence: None)
  Receive Date: 20070702
  Receipt Date: 20070621
  Transmission Date: 20080115
  Serious: Yes (Other)
  Sender: FDA-Public Use
  Company Number: CA-JNJFOC-20060603653

PATIENT
  Sex: Female
  Weight: 52.4 kg

DRUGS (3)
  1. REMICADE [Suspect]
     Indication: CROHN'S DISEASE
     Route: 042
  2. INFUFER [Concomitant]
     Indication: IRON DEFICIENCY ANAEMIA
     Dosage: EVERY 4-6 MONTHS FOR 5-6 YEARS
     Route: 042
  3. PENTASA [Concomitant]
     Indication: CROHN'S DISEASE
     Dosage: 500 MG (2 TABLETS) FOUR TIMES A DAY FOR SEVERAL YEARS
     Route: 048

REACTIONS (1)
  - SKIN CANCER [None]
